FAERS Safety Report 12805975 (Version 2)
Quarter: 2016Q4

REPORT INFORMATION
  Report Type: Spontaneous
  Country: US (occurrence: US)
  Receive Date: 20161004
  Receipt Date: 20161025
  Transmission Date: 20170207
  Serious: No
  Sender: FDA-Public Use
  Company Number: US-PFIZER INC-2016461067

PATIENT
  Age: 64 Year
  Sex: Female

DRUGS (1)
  1. ESTRING [Suspect]
     Active Substance: ESTRADIOL
     Indication: ATROPHY
     Dosage: 2 MG, EVERY 3 MONTHS
     Route: 067
     Dates: start: 20150903, end: 20160907

REACTIONS (4)
  - Pruritus generalised [Recovering/Resolving]
  - Vulvovaginal discomfort [Recovered/Resolved]
  - Vulvovaginal erythema [Recovering/Resolving]
  - Vulvovaginal pruritus [Recovered/Resolved]

NARRATIVE: CASE EVENT DATE: 20160907
